FAERS Safety Report 8492817-1 (Version None)
Quarter: 2012Q3

REPORT INFORMATION
  Report Type: 
  Country: None (occurrence: None)
  Receive Date: 20120706
  Receipt Date: 20120627
  Transmission Date: 20120928
  Serious: Yes (Other)
  Sender: FDA-Public Use
  Company Number: JP-JNJFOC-20120700778

PATIENT
  Age: 22 Year
  Sex: Male

DRUGS (5)
  1. REMICADE [Suspect]
     Indication: CROHN'S DISEASE
     Dosage: 25-NOV (YEAR UNSPECIFIED)
     Route: 042
  2. REMICADE [Suspect]
     Dosage: 2 WEEKS AFTER THE THIRD DOSE
     Route: 042
  3. METRONIDAZOLE [Concomitant]
     Route: 065
  4. AMOXICILLIN [Concomitant]
     Route: 065
  5. SULFASALAZINE [Concomitant]
     Route: 065

REACTIONS (2)
  - DERMATITIS PSORIASIFORM [None]
  - ALOPECIA [None]
